FAERS Safety Report 6573745-5 (Version None)
Quarter: 2010Q1

REPORT INFORMATION
  Report Type: 
  Country: None (occurrence: None)
  Receive Date: 20100208
  Receipt Date: 20100201
  Transmission Date: 20100710
  Serious: Yes (Hospitalization)
  Sender: FDA-Public Use
  Company Number: B0629333A

PATIENT
  Sex: Female
  Weight: 60 kg

DRUGS (2)
  1. ARIXTRA [Suspect]
     Indication: DRUG USE FOR UNKNOWN INDICATION
     Route: 058
     Dates: start: 20100101, end: 20100101
  2. CALCIPARINE [Suspect]
     Indication: DRUG USE FOR UNKNOWN INDICATION
     Dosage: .4ML SINGLE DOSE
     Route: 058
     Dates: start: 20100107, end: 20100107

REACTIONS (3)
  - HAEMARTHROSIS [None]
  - HAEMATOMA [None]
  - HAEMORRHAGIC ANAEMIA [None]
